FAERS Safety Report 11802167 (Version 4)
Quarter: 2016Q1

REPORT INFORMATION
  Report Type: Spontaneous
  Country: TW (occurrence: TW)
  Receive Date: 20151204
  Receipt Date: 20160112
  Transmission Date: 20160525
  Serious: Yes (Hospitalization)
  Sender: FDA-Public Use
  Company Number: TW-KERYX BIOPHARMACEUTICALS, INC.-2015TW001344

PATIENT
  Age: 69 Year
  Sex: Male

DRUGS (5)
  1. PLATELET AGGREGATION INHIBITORS EXCL. HEPARIN [Concomitant]
     Dosage: UNK
  2. NEPHOXIL [Suspect]
     Active Substance: FERRIC CITRATE ANHYDROUS
     Indication: HYPERPHOSPHATAEMIA
     Dosage: 500 MG, QD
     Route: 048
     Dates: start: 20150922
  3. ANTIHYPERTENSIVES [Concomitant]
     Active Substance: UNSPECIFIED INGREDIENT
     Dosage: UNK
  4. ORAL ANTIDIABETICS [Concomitant]
     Active Substance: UNSPECIFIED INGREDIENT
     Dosage: UNK
  5. LIPID MODIFYING AGENTS [Concomitant]
     Active Substance: UNSPECIFIED INGREDIENT
     Dosage: UNK

REACTIONS (1)
  - Acute myocardial infarction [Unknown]
